FAERS Safety Report 8742417 (Version 2)
Quarter: 2012Q4

REPORT INFORMATION
  Report Type: 
  Country: BR (occurrence: BR)
  Receive Date: 20120824
  Receipt Date: 20121205
  Transmission Date: 20130627
  Serious: Yes (Death, Hospitalization, Other)
  Sender: FDA-Public Use
  Company Number: BR-PFIZER INC-2012158114

PATIENT
  Age: 72 Year
  Sex: Male

DRUGS (10)
  1. SUTENT [Suspect]
     Indication: RENAL CELL CARCINOMA
     Dosage: 1 tablet of 50 mg, 1x/day / cycle 4x2
     Route: 048
     Dates: start: 20120531
  2. SUTENT [Suspect]
     Dosage: 37.5 mg, 1x/day / cycle 4x2
     Route: 048
     Dates: end: 20120819
  3. SELOZOK [Concomitant]
     Dosage: UNK
     Dates: end: 2012
  4. ATLANSIL [Concomitant]
     Dosage: UNK
     Dates: end: 2012
  5. ICTUS [Concomitant]
     Dosage: UNK
  6. FUROSEMIDE [Concomitant]
     Dosage: UNK
  7. LASIX [Concomitant]
     Dosage: UNK
  8. SECOTEX [Concomitant]
     Dosage: UNK
  9. FINASTERIDE [Concomitant]
     Dosage: UNK
  10. HIDANTAL [Concomitant]
     Dosage: 100 mg, 3x/day

REACTIONS (9)
  - Death [Fatal]
  - Urinary tract infection [Unknown]
  - Feeling abnormal [Unknown]
  - Vomiting [Unknown]
  - Convulsion [Unknown]
  - Wound [Not Recovered/Not Resolved]
  - Oral mucosal erythema [Not Recovered/Not Resolved]
  - Testicular disorder [Not Recovered/Not Resolved]
  - Blood pressure increased [Unknown]
